FAERS Safety Report 9397503 (Version 1)
Quarter: 2013Q3

REPORT INFORMATION
  Report Type: Spontaneous
  Country: FR (occurrence: FR)
  Receive Date: 20130712
  Receipt Date: 20130712
  Transmission Date: 20140515
  Serious: Yes (Other)
  Sender: FDA-Public Use
  Company Number: FR-JNJFOC-20130700431

PATIENT
  Age: 48 Year
  Sex: Female

DRUGS (2)
  1. RISPERDAL [Suspect]
     Indication: SCHIZOPHRENIA
     Route: 048
     Dates: start: 20130515, end: 20130517
  2. TERCIAN [Suspect]
     Indication: SCHIZOPHRENIA
     Route: 048
     Dates: start: 20130515, end: 20130517

REACTIONS (1)
  - Mixed liver injury [Recovered/Resolved]
